FAERS Safety Report 18176474 (Version 1)
Quarter: 2020Q3

REPORT INFORMATION
  Report Type: Spontaneous
  Country: JP (occurrence: JP)
  Receive Date: 20200820
  Receipt Date: 20200820
  Transmission Date: 20201103
  Serious: Yes (Other)
  Sender: FDA-Public Use
  Company Number: JP-BRISTOL-MYERS SQUIBB COMPANY-BMS-2020-065592

PATIENT
  Age: 16 Year
  Sex: Female

DRUGS (4)
  1. BETAMETHASONE. [Concomitant]
     Active Substance: BETAMETHASONE
     Indication: VERNAL KERATOCONJUNCTIVITIS
     Dosage: UNK
     Route: 047
  2. TACROLIMUS MONOHYDRATE [Concomitant]
     Active Substance: TACROLIMUS
     Indication: VERNAL KERATOCONJUNCTIVITIS
     Dosage: UNK
     Route: 047
  3. EPINASTINE [EPINASTINE HYDROCHLORIDE] [Concomitant]
     Indication: VERNAL KERATOCONJUNCTIVITIS
     Dosage: UNK
     Route: 047
  4. KENACORT?A [Suspect]
     Active Substance: TRIAMCINOLONE ACETONIDE
     Indication: VERNAL KERATOCONJUNCTIVITIS
     Dosage: UNK
     Route: 058

REACTIONS (1)
  - Keratitis bacterial [Recovering/Resolving]
